FAERS Safety Report 17923077 (Version 1)
Quarter: 2020Q2

REPORT INFORMATION
  Report Type: Spontaneous
  Country: US (occurrence: US)
  Receive Date: 20200621
  Receipt Date: 20200621
  Transmission Date: 20200714
  Serious: Yes (Death, Life-Threatening, Disabling, Other)
  Sender: FDA-Public Use
  Company Number: None

PATIENT
  Age: 64 Year
  Sex: Male
  Weight: 100.6 kg

DRUGS (3)
  1. ANDEXANET ALFA [Suspect]
     Active Substance: ANDEXANET ALFA
     Indication: ANTI FACTOR XA ACTIVITY DECREASED
     Dosage: ?          OTHER FREQUENCY:ONCE;?
     Route: 041
     Dates: start: 20200521, end: 20200521
  2. ANDEXANET ALFA [Suspect]
     Active Substance: ANDEXANET ALFA
     Indication: ANTI FACTOR XA ACTIVITY DECREASED
     Dosage: ?          OTHER FREQUENCY:ONCE;?
     Route: 040
     Dates: start: 20200521, end: 20200521
  3. APIXABAN [Concomitant]
     Active Substance: APIXABAN
     Dates: start: 20200512, end: 20200519

REACTIONS (11)
  - Myoclonus [None]
  - Off label use [None]
  - Hypotension [None]
  - Pyrexia [None]
  - Pupillary disorder [None]
  - Troponin I increased [None]
  - Tachycardia [None]
  - Ejection fraction decreased [None]
  - Acute myocardial infarction [None]
  - Pulse absent [None]
  - Mean arterial pressure decreased [None]

NARRATIVE: CASE EVENT DATE: 20200522
